FAERS Safety Report 10178618 (Version 1)
Quarter: 2014Q2

REPORT INFORMATION
  Report Type: Spontaneous
  Country: DE (occurrence: DE)
  Receive Date: 20140519
  Receipt Date: 20140519
  Transmission Date: 20141212
  Serious: Yes (Hospitalization)
  Sender: FDA-Public Use
  Company Number: DE-UCBSA-120945

PATIENT
  Age: 67 Year
  Sex: Female

DRUGS (5)
  1. ROTIGOTINE [Suspect]
     Dosage: DOSE: 8 MG
  2. L-DOPA [Concomitant]
     Dosage: 150MG MG
  3. L-DOPA [Concomitant]
     Dosage: DOSE INCREASED
  4. CARBIDOPA [Concomitant]
     Dosage: 37.5MG
  5. ENTACAPONE [Concomitant]

REACTIONS (4)
  - Gait disturbance [Recovering/Resolving]
  - Tremor [Recovering/Resolving]
  - Bradykinesia [Recovering/Resolving]
  - Impaired gastric emptying [Recovering/Resolving]
